FAERS Safety Report 15824117 (Version 12)
Quarter: 2019Q3

REPORT INFORMATION
  Report Type: Report from Study
  Country: DE (occurrence: DE)
  Receive Date: 20190114
  Receipt Date: 20190930
  Transmission Date: 20191004
  Serious: Yes (Death, Life-Threatening, Hospitalization, Other)
  Sender: FDA-Public Use
  Company Number: DE-MYLANLABS-2019M1003335

PATIENT
  Age: 68 Year
  Sex: Female
  Weight: 53 kg

DRUGS (49)
  1. CLOZAPINE MYLAN [Suspect]
     Active Substance: CLOZAPINE
     Dosage: 225 MILLIGRAM, QD
     Route: 048
     Dates: start: 20090111
  2. STALEVO [Suspect]
     Active Substance: CARBIDOPA\ENTACAPONE\LEVODOPA
     Indication: PRODUCT USED FOR UNKNOWN INDICATION
     Dosage: 600 MILLIGRAM, QD
     Route: 048
  3. LEVODOPA [Suspect]
     Active Substance: LEVODOPA
     Indication: PRODUCT USED FOR UNKNOWN INDICATION
     Dosage: 600 MILLIGRAM, QD
     Route: 048
  4. ERGENYL [Concomitant]
     Active Substance: VALPROIC ACID
     Dosage: 600 MG, QD
     Route: 065
     Dates: start: 20090111
  5. NOVAMINSULFON [Concomitant]
     Active Substance: METAMIZOLE
     Indication: PRODUCT USED FOR UNKNOWN INDICATION
     Dosage: 4 DF, QID (20 DROPS)
     Route: 065
  6. L DOPA [Concomitant]
     Active Substance: LEVODOPA
     Indication: PREMEDICATION
     Dosage: 93.75 MILLIGRAM, QD
     Route: 065
  7. NOVALGIN                           /00169801/ [Concomitant]
     Active Substance: ACETAMINOPHEN\CAFFEINE\PROPYPHENAZONE
     Indication: PRODUCT USED FOR UNKNOWN INDICATION
     Dosage: UNK
     Route: 042
  8. TRAMAL [Concomitant]
     Active Substance: TRAMADOL
     Indication: PRODUCT USED FOR UNKNOWN INDICATION
     Dosage: UNK
     Route: 042
  9. OMEPRAZOLE. [Suspect]
     Active Substance: OMEPRAZOLE
     Dosage: 40 MILLIGRAM, QD
     Route: 048
  10. CLOZAPINE MYLAN [Suspect]
     Active Substance: CLOZAPINE
     Dosage: 25 MILLIGRAM, 3XW
     Route: 048
  11. LEVODOPA [Suspect]
     Active Substance: LEVODOPA
     Dosage: 250 MILLIGRAM, QD
     Route: 048
     Dates: start: 20090111
  12. PIPAMPERONE [Suspect]
     Active Substance: PIPAMPERONE
     Indication: PREMEDICATION
     Dosage: 40 MILLIGRAM, QH
     Route: 048
  13. ERGENYL [Concomitant]
     Active Substance: VALPROIC ACID
     Indication: PRODUCT USED FOR UNKNOWN INDICATION
     Dosage: 300 MILLIGRAM, QH
     Route: 065
     Dates: start: 20090111
  14. NACOM [Concomitant]
     Active Substance: CARBIDOPA\LEVODOPA
     Indication: PRODUCT USED FOR UNKNOWN INDICATION
     Dosage: 250 MILLIGRAM, QD
  15. ISICOM [Concomitant]
     Active Substance: CARBIDOPA\LEVODOPA
     Indication: PRODUCT USED FOR UNKNOWN INDICATION
     Dosage: 25 MILLIGRAM, QD (3/DAY)
     Route: 065
  16. CLOZAPINE MYLAN [Suspect]
     Active Substance: CLOZAPINE
     Dosage: 62.5 MILLIGRAM, QD
     Route: 048
  17. EXELON [Suspect]
     Active Substance: RIVASTIGMINE TARTRATE
     Dosage: UNK, QD (3-1.5-1.5 MG PER DAY)
     Route: 048
  18. METOCLOPRAMID                      /00041901/ [Concomitant]
     Active Substance: METOCLOPRAMIDE
     Indication: PRODUCT USED FOR UNKNOWN INDICATION
     Dosage: UNK
     Route: 042
  19. ISICOM [Concomitant]
     Active Substance: CARBIDOPA\LEVODOPA
     Dosage: 200 MILLIGRAM
     Route: 048
  20. OMEPRAZOLE. [Suspect]
     Active Substance: OMEPRAZOLE
     Indication: PREMEDICATION
     Dosage: 40 MILLIGRAM, BID
     Route: 048
     Dates: end: 200901
  21. CARBIDOPA. [Suspect]
     Active Substance: CARBIDOPA
     Indication: PRODUCT USED FOR UNKNOWN INDICATION
     Dosage: 200 MILLIGRAM, QH
     Route: 048
  22. STALEVO [Suspect]
     Active Substance: CARBIDOPA\ENTACAPONE\LEVODOPA
     Dosage: 50 MG,QD(1-1-1)
     Route: 048
  23. CLOZAPINE MYLAN [Suspect]
     Active Substance: CLOZAPINE
     Indication: PRODUCT USED FOR UNKNOWN INDICATION
     Dosage: 25 MILLIGRAM
     Route: 048
  24. RIVASTIGMINE. [Suspect]
     Active Substance: RIVASTIGMINE
     Indication: PARKINSON^S DISEASE
     Dosage: 3 MILLIGRAM, BID
     Route: 048
     Dates: end: 200901
  25. EXELON [Suspect]
     Active Substance: RIVASTIGMINE TARTRATE
     Dosage: 3 MILLIGRAM, BID
     Route: 048
  26. STALEVO [Suspect]
     Active Substance: CARBIDOPA\ENTACAPONE\LEVODOPA
     Dosage: 6 DOSAGE FORM, QD
     Route: 048
  27. DOMPERIDONE [Suspect]
     Active Substance: DOMPERIDONE
     Indication: PREMEDICATION
     Dosage: 10 MILLIGRAM, BID
     Route: 048
     Dates: end: 200901
  28. DOMPERIDONE [Suspect]
     Active Substance: DOMPERIDONE
     Dosage: 10 MILLIGRAM, QD
     Route: 048
  29. MOVICOL [Concomitant]
     Active Substance: POLYETHYLENE GLYCOL 3350\POTASSIUM CHLORIDE\SODIUM BICARBONATE\SODIUM CHLORIDE
     Indication: PRODUCT USED FOR UNKNOWN INDICATION
     Dosage: 1 DF, QD (UG/L)
     Route: 065
  30. LACTULOSE. [Concomitant]
     Active Substance: LACTULOSE
     Indication: PRODUCT USED FOR UNKNOWN INDICATION
     Dosage: 20 MILLILITER, QD
  31. MERCAPTOPURINE. [Concomitant]
     Active Substance: MERCAPTOPURINE
     Indication: PRODUCT USED FOR UNKNOWN INDICATION
     Dosage: UNK
     Route: 042
  32. RIVASTIGMINE. [Suspect]
     Active Substance: RIVASTIGMINE
     Dosage: 6 MILLIGRAM, QD
     Route: 048
     Dates: start: 20090111
  33. RIVASTIGMINE. [Suspect]
     Active Substance: RIVASTIGMINE
     Dosage: 1 MILLIGRAM, QD (3-1.5-1.5)
     Route: 048
  34. RIVASTIGMINE. [Suspect]
     Active Substance: RIVASTIGMINE
     Indication: PRODUCT USED FOR UNKNOWN INDICATION
     Dosage: UNK
  35. STALEVO [Suspect]
     Active Substance: CARBIDOPA\ENTACAPONE\LEVODOPA
     Dosage: 250 MILLIGRAM, QD
     Route: 048
     Dates: start: 20090111
  36. LEVODOPA [Suspect]
     Active Substance: LEVODOPA
     Dosage: 93.75 MILLIGRAM, QD
     Route: 048
  37. EXELON [Suspect]
     Active Substance: RIVASTIGMINE TARTRATE
     Dosage: 6 MILLIGRAM, QD
     Route: 048
  38. VALPROIC ACID. [Suspect]
     Active Substance: VALPROIC ACID
     Indication: PRODUCT USED FOR UNKNOWN INDICATION
     Dosage: 300 MILLIGRAM, QD
     Route: 048
     Dates: end: 200901
  39. VALPROIC ACID. [Suspect]
     Active Substance: VALPROIC ACID
     Dosage: 600 MILLIGRAM, QD (300 MG, BID)
     Route: 048
  40. CARBIDOPA. [Suspect]
     Active Substance: CARBIDOPA
     Dosage: 200 MILLIGRAM, QD
     Route: 048
  41. STALEVO [Suspect]
     Active Substance: CARBIDOPA\ENTACAPONE\LEVODOPA
     Dosage: 100 MG, QD (0-0-0-1)
     Route: 048
     Dates: end: 200901
  42. PIPAMPERONE [Suspect]
     Active Substance: PIPAMPERONE
     Dosage: 40 MILLIGRAM, QD
     Route: 048
  43. DISTRANEURIN                       /00027501/ [Suspect]
     Active Substance: CLOMETHIAZOLE
     Indication: PREMEDICATION
     Dosage: 1 OT, PRN
     Route: 048
     Dates: start: 2009
  44. NEOSTIGMINE. [Concomitant]
     Active Substance: NEOSTIGMINE METHYLSULFATE
     Indication: PRODUCT USED FOR UNKNOWN INDICATION
     Dosage: UNK
     Route: 065
  45. KALIUM                             /00031401/ [Concomitant]
     Active Substance: POTASSIUM CHLORIDE
     Indication: PRODUCT USED FOR UNKNOWN INDICATION
     Dosage: UNK, QD
     Route: 065
  46. CLOZAPINE MYLAN [Suspect]
     Active Substance: CLOZAPINE
     Dosage: 12.5 MILLIGRAM, QD
     Route: 048
     Dates: start: 200901, end: 200901
  47. EXELON [Suspect]
     Active Substance: RIVASTIGMINE TARTRATE
     Indication: PARKINSON^S DISEASE
     Dosage: 3 MILLIGRAM, QD
     Route: 048
  48. LEVODOPA [Suspect]
     Active Substance: LEVODOPA
     Dosage: 200 MILLIGRAM, QD
     Route: 048
  49. ENTACAPONE. [Concomitant]
     Active Substance: ENTACAPONE
     Indication: PRODUCT USED FOR UNKNOWN INDICATION
     Dosage: UNK

REACTIONS (12)
  - Abdominal tenderness [Fatal]
  - Faecaloma [Fatal]
  - Gastrointestinal sounds abnormal [Fatal]
  - White blood cell count increased [Fatal]
  - Pancreatitis acute [Fatal]
  - Abdominal distension [Fatal]
  - Dementia [Fatal]
  - Ileus [Fatal]
  - Bladder disorder [Fatal]
  - Abdominal pain [Fatal]
  - Nausea [Fatal]
  - Vascular encephalopathy [Fatal]

NARRATIVE: CASE EVENT DATE: 2009
